FAERS Safety Report 23799068 (Version 3)
Quarter: 2024Q4

REPORT INFORMATION
  Report Type: Report from Study
  Country: DE (occurrence: DE)
  Receive Date: 20240430
  Receipt Date: 20241026
  Transmission Date: 20250115
  Serious: No
  Sender: ROCHE
  Company Number: DE-ROCHE-3552987

PATIENT
  Age: 2 Month
  Sex: Male
  Weight: 5.7 kg

DRUGS (14)
  1. OCRELIZUMAB [Suspect]
     Active Substance: OCRELIZUMAB
     Indication: Product used for unknown indication
     Dosage: SUBSEQUENT DOSE WAS ON 29-SEP-2023
     Route: 065
     Dates: start: 20220909, end: 20220909
  2. ACETAMINOPHEN [Concomitant]
     Active Substance: ACETAMINOPHEN
     Indication: Prophylaxis
     Dates: start: 20220909, end: 20220909
  3. DIMETHINDENE [Concomitant]
     Active Substance: DIMETHINDENE
     Indication: Prophylaxis
     Dates: start: 20220909, end: 20220909
  4. TOPIRAMATE [Concomitant]
     Active Substance: TOPIRAMATE
     Dates: start: 2017, end: 20221124
  5. GABAPENTIN [Concomitant]
     Active Substance: GABAPENTIN
     Dates: start: 2014, end: 20221124
  6. GABAPENTIN [Concomitant]
     Active Substance: GABAPENTIN
     Dates: start: 20230731
  7. TIZANIDINE HYDROCHLORIDE [Concomitant]
     Active Substance: TIZANIDINE HYDROCHLORIDE
     Dates: start: 2020, end: 20221124
  8. DALFAMPRIDINE [Concomitant]
     Active Substance: DALFAMPRIDINE
     Dates: start: 20210827, end: 20221001
  9. MIRABEGRON [Concomitant]
     Active Substance: MIRABEGRON
     Dates: start: 202203, end: 20221124
  10. DULOXETINE [Concomitant]
     Active Substance: DULOXETINE
     Dates: start: 2014, end: 20221124
  11. DULOXETINE [Concomitant]
     Active Substance: DULOXETINE
     Dates: start: 20230731
  12. INSULIN NOS [Concomitant]
     Active Substance: INSULIN NOS
     Dates: start: 20230510, end: 20230719
  13. INSULIN NOS [Concomitant]
     Active Substance: INSULIN NOS
     Dates: start: 20230615, end: 20230719
  14. ENOXAPARIN SODIUM [Concomitant]
     Active Substance: ENOXAPARIN SODIUM
     Dates: start: 20230727, end: 20230806

REACTIONS (2)
  - Congenital COVID-19 [Recovered/Resolved]
  - Foetal exposure during pregnancy [Unknown]

NARRATIVE: CASE EVENT DATE: 20231002
